FAERS Safety Report 20751374 (Version 1)
Quarter: 2022Q2

REPORT INFORMATION
  Report Type: Spontaneous
  Country: PT (occurrence: PT)
  Receive Date: 20220426
  Receipt Date: 20220426
  Transmission Date: 20220720
  Serious: Yes (Other)
  Sender: FDA-Public Use
  Company Number: None

PATIENT
  Age: 24 Year
  Sex: Female

DRUGS (2)
  1. AMOXICILLIN\CLAVULANIC ACID [Suspect]
     Active Substance: AMOXICILLIN\CLAVULANIC ACID
     Dosage: THERAPY START DATE ASKU, THERAPY END DATE ASKU
     Route: 065
  2. CEFUROXIME [Suspect]
     Active Substance: CEFUROXIME
     Dosage: THERAPY START DATE ASKU, THERAPY END DATE ASKU
     Route: 065

REACTIONS (3)
  - Arthralgia [Recovered/Resolved]
  - Urticaria [Recovered/Resolved]
  - Generalised oedema [Recovered/Resolved]
